FAERS Safety Report 5640068-8 (Version None)
Quarter: 2008Q1

REPORT INFORMATION
  Report Type: 
  Country: None (occurrence: None)
  Receive Date: 20080227
  Receipt Date: 20080208
  Transmission Date: 20080703
  Serious: No
  Sender: FDA-Public Use
  Company Number: US-BAYER-200814070NA

PATIENT
  Sex: Female

DRUGS (3)
  1. YAZ [Suspect]
     Indication: CONTRACEPTION
     Route: 048
  2. ANTIBIOTIC NOS [Concomitant]
  3. PYRIDIUM [Concomitant]

REACTIONS (1)
  - URINARY TRACT INFECTION [None]
